FAERS Safety Report 5073912-6 (Version None)
Quarter: 2006Q3

REPORT INFORMATION
  Report Type: 
  Country: None (occurrence: None)
  Receive Date: 20060808
  Receipt Date: 20060731
  Transmission Date: 20061208
  Serious: Yes (Other)
  Sender: FDA-Public Use
  Company Number: PHEH2006US09846

PATIENT
  Age: 68 Year
  Sex: Male

DRUGS (10)
  1. ZOMETA [Suspect]
     Dosage: 4 MG, UNK
     Dates: start: 20021015, end: 20050204
  2. LUPRON [Concomitant]
     Dosage: 7.5 MG, UNK
     Dates: start: 20020723, end: 20020917
  3. LUPRON [Concomitant]
     Dosage: 7.5 MG, UNK
     Dates: start: 20030107
  4. ANZEMET [Concomitant]
     Dosage: 100 MG, UNK
     Dates: start: 20030130, end: 20031118
  5. NOVANTRONE [Concomitant]
     Dosage: 15 MG, UNK
     Dates: start: 20030130, end: 20031118
  6. GRANISETRON  HCL [Concomitant]
     Dosage: 1 MG, UNK
     Dates: start: 20041015, end: 20050722
  7. MITOXANTRONE [Concomitant]
     Dosage: 24 MG, UNK
     Dates: start: 20041015, end: 20050225
  8. DOCETAXEL [Concomitant]
     Dosage: 150 MG, UNK
     Dates: start: 20050318, end: 20050722
  9. AREDIA [Suspect]
     Indication: PROSTATE CANCER
     Dosage: 60 MG, UNK
     Dates: start: 20020613, end: 20020917
  10. AREDIA [Suspect]
     Dosage: 90 MG, UNK
     Dates: start: 20050211, end: 20050621

REACTIONS (11)
  - ANAEMIA [None]
  - BONE DISORDER [None]
  - DENTAL CARIES [None]
  - EXOSTOSIS [None]
  - GINGIVAL PAIN [None]
  - GINGIVITIS [None]
  - OSTEONECROSIS [None]
  - OSTEOSCLEROSIS [None]
  - PAIN IN JAW [None]
  - SWELLING [None]
  - TOOTH EXTRACTION [None]
